FAERS Safety Report 7901199 (Version 3)
Quarter: 2013Q2

REPORT INFORMATION
  Report Type: Report from Study
  Country: JP (occurrence: JP)
  Receive Date: 20110415
  Receipt Date: 20130403
  Transmission Date: 20140414
  Serious: Yes (Hospitalization, Other)
  Sender: FDA-Public Use
  Company Number: JP-BRISTOL-MYERS SQUIBB COMPANY-15674013

PATIENT
  Age: 73 Year
  Sex: Male
  Weight: 51.4 kg

DRUGS (5)
  1. ERBITUX SOLN FOR INF 5MG/ML [Suspect]
     Indication: RECTAL CANCER METASTATIC
     Dosage: 600MG ON 15FEB11, 400MG FROM 22FEB11-8MAR2011?NO OF INF:4
     Route: 042
     Dates: start: 20110215, end: 20110308
  2. MINOMYCIN [Concomitant]
  3. STEROIDS [Concomitant]
  4. CHLOR-TRIMETON [Concomitant]
     Indication: PREMEDICATION
     Route: 042
     Dates: start: 20110215
  5. DEXART [Concomitant]
     Indication: PREMEDICATION
     Route: 042
     Dates: start: 20110215

REACTIONS (3)
  - Nephrotic syndrome [Unknown]
  - Dermatitis acneiform [Unknown]
  - Dry skin [Recovered/Resolved]
